FAERS Safety Report 23476031 (Version 3)
Quarter: 2024Q1

REPORT INFORMATION
  Report Type: Spontaneous
  Country: US (occurrence: US)
  Receive Date: 20240204
  Receipt Date: 20240319
  Transmission Date: 20240410
  Serious: No
  Sender: FDA-Public Use
  Company Number: US-AMGEN-USASP2024023727

PATIENT
  Age: 34 Year
  Sex: Male

DRUGS (2)
  1. BLINCYTO [Suspect]
     Active Substance: BLINATUMOMAB
     Indication: B precursor type acute leukaemia
     Dosage: 28 MICROGRAM, CENTRAL INTRAVENOUS (CIV), QD
     Route: 042
     Dates: start: 20231012, end: 2023
  2. BLINCYTO [Suspect]
     Active Substance: BLINATUMOMAB
     Dosage: UNK, CENTRAL INTRAVENOUS (CIV), THERAPY RESTARTED
     Route: 042
     Dates: start: 20231128, end: 20231205

REACTIONS (2)
  - Rash papular [Recovered/Resolved]
  - Rash maculo-papular [Unknown]

NARRATIVE: CASE EVENT DATE: 20231108
